FAERS Safety Report 8267951-1 (Version None)
Quarter: 2012Q2

REPORT INFORMATION
  Report Type: 
  Country: None (occurrence: None)
  Receive Date: 20120409
  Receipt Date: 20120329
  Transmission Date: 20120825
  Serious: Yes (Hospitalization)
  Sender: FDA-Public Use
  Company Number: PHHY2012JP028959

PATIENT
  Age: 67 Year
  Sex: Female
  Weight: 55 kg

DRUGS (5)
  1. LYRICA [Concomitant]
     Indication: OCCIPITAL NEURALGIA
     Dosage: 75 MG, BID
  2. FAMVIR [Suspect]
     Indication: HERPES ZOSTER
     Dosage: 500 MG
     Route: 048
     Dates: start: 20111125, end: 20111125
  3. PRAVASTATIN SODIUM [Concomitant]
     Dosage: 10 MG
     Route: 048
     Dates: start: 20081225
  4. LOXONIN [Concomitant]
     Route: 048
  5. FAMVIR [Suspect]
     Dosage: 250 MG, UNK
     Route: 048
     Dates: start: 20111126, end: 20111203

REACTIONS (5)
  - RED BLOOD CELL COUNT DECREASED [None]
  - BLOOD ALKALINE PHOSPHATASE INCREASED [None]
  - BLOOD PRESSURE SYSTOLIC INCREASED [None]
  - DIZZINESS [None]
  - LOSS OF CONSCIOUSNESS [None]
